FAERS Safety Report 9354528 (Version 1)
Quarter: 2013Q2

REPORT INFORMATION
  Report Type: Spontaneous
  Country: US (occurrence: US)
  Receive Date: 20130618
  Receipt Date: 20130618
  Transmission Date: 20140414
  Serious: Yes (Hospitalization, Other)
  Sender: FDA-Public Use
  Company Number: US-PFIZER INC-2013174311

PATIENT
  Age: 79 Year
  Sex: Female

DRUGS (4)
  1. GUAIFENESIN [Suspect]
     Dosage: UNK
  2. SORBITOL [Suspect]
     Dosage: UNK
  3. GERI-TUSSIN [Suspect]
     Indication: LOWER RESPIRATORY TRACT INFECTION
     Dosage: UNK
     Dates: start: 20130605
  4. THYROXINE [Concomitant]
     Indication: THYROID DISORDER
     Dosage: UNK

REACTIONS (7)
  - Anaphylactic reaction [Unknown]
  - Cytogenetic abnormality [Unknown]
  - Hypothermia [Unknown]
  - Rash [Unknown]
  - Asthenia [Unknown]
  - Dizziness [Unknown]
  - Vomiting [Unknown]
